FAERS Safety Report 5626721-0 (Version None)
Quarter: 2008Q1

REPORT INFORMATION
  Report Type: 
  Country: None (occurrence: None)
  Receive Date: 20080212
  Receipt Date: 20080131
  Transmission Date: 20080703
  Serious: Yes (Hospitalization)
  Sender: FDA-Public Use
  Company Number: 239167K07USA

PATIENT
  Age: 49 Year
  Sex: Female
  Weight: 63.5036 kg

DRUGS (2)
  1. REBIF [Suspect]
     Indication: MULTIPLE SCLEROSIS
     Dosage: 44 MCG, 3 IN 1 WEEKS, SUBCUTANEOUS
     Route: 058
     Dates: start: 20070829
  2. BACLOFEN [Concomitant]

REACTIONS (4)
  - BODY TEMPERATURE INCREASED [None]
  - PAIN IN EXTREMITY [None]
  - SKIN ULCER [None]
  - WOUND SECRETION [None]
